FAERS Safety Report 8934665 (Version 2)
Quarter: 2013Q2

REPORT INFORMATION
  Report Type: Spontaneous
  Country: US (occurrence: US)
  Receive Date: 20121129
  Receipt Date: 20130405
  Transmission Date: 20140414
  Serious: Yes (Death, Hospitalization, Other)
  Sender: FDA-Public Use
  Company Number: US-SHIRE-ALL1-2012-05793

PATIENT
  Age: 83 Year
  Sex: Male
  Weight: 84.81 kg

DRUGS (11)
  1. AGRYLIN [Suspect]
     Indication: ESSENTIAL THROMBOCYTHAEMIA
     Dosage: 0.5 MG (9 PER DAY), OTHER
     Route: 048
     Dates: start: 20120405, end: 20121121
  2. AGRYLIN [Suspect]
     Dosage: 0.5 MG, 2X/DAY:BID
     Route: 048
     Dates: start: 201105, end: 201108
  3. AGRYLIN [Suspect]
     Dosage: 0.5 MG, 3X/DAY:TID
     Route: 048
     Dates: start: 201108, end: 20120404
  4. HYDROXYUREA [Concomitant]
     Indication: THROMBOCYTOSIS
     Dosage: UNK, UNKNOWN
     Route: 065
  5. ASPIRIN [Concomitant]
     Indication: PRODUCT USED FOR UNKNOWN INDICATION
     Dosage: UNK, UNKNOWN
     Route: 065
  6. DIGOXIN [Concomitant]
     Indication: PRODUCT USED FOR UNKNOWN INDICATION
     Dosage: 125 ?G, 1X/DAY:QD
     Route: 065
  7. FUROSEMIDE [Concomitant]
     Indication: PRODUCT USED FOR UNKNOWN INDICATION
     Dosage: 20 MG, 1X/DAY:QD
     Route: 065
  8. MIDODRINE [Concomitant]
     Indication: PRODUCT USED FOR UNKNOWN INDICATION
     Dosage: 10 MG, OTHER (3X/WEEK 30-60 BEFORE DIALYSIS)
     Route: 065
  9. PROCRIT                            /00909301/ [Concomitant]
     Indication: PRODUCT USED FOR UNKNOWN INDICATION
     Dosage: UNK UNK, UNKNOWN (AT DIALYSIS)
     Route: 065
  10. METOPROLOL [Concomitant]
     Indication: PRODUCT USED FOR UNKNOWN INDICATION
     Dosage: 25 MG, 2X/DAY:BID
     Route: 065
  11. CALCIUM ANTACID [Concomitant]
     Indication: PRODUCT USED FOR UNKNOWN INDICATION
     Dosage: 1 DF, 1X/DAY:QD (AT BEDTIME)
     Route: 065

REACTIONS (14)
  - Death [Fatal]
  - Pulmonary congestion [Not Recovered/Not Resolved]
  - General physical health deterioration [Unknown]
  - Restrictive pulmonary disease [Unknown]
  - Carbon monoxide diffusing capacity decreased [Unknown]
  - Interstitial lung disease [Not Recovered/Not Resolved]
  - Sepsis [Unknown]
  - Pleural effusion [Recovered/Resolved]
  - Atrial fibrillation [Unknown]
  - Sick sinus syndrome [Unknown]
  - Hypoxia [Unknown]
  - Discomfort [Unknown]
  - Aphasia [Unknown]
  - Asthenia [Unknown]
